FAERS Safety Report 10086455 (Version 1)
Quarter: 2014Q2

REPORT INFORMATION
  Report Type: Spontaneous
  Country: US (occurrence: None)
  Receive Date: 20140417
  Receipt Date: 20140417
  Transmission Date: 20141212
  Serious: Yes (Hospitalization)
  Sender: FDA-Public Use
  Company Number: None

PATIENT
  Age: 64 Year
  Sex: Female
  Weight: 59.3 kg

DRUGS (8)
  1. CISPLATIN [Suspect]
  2. ERBITUX [Suspect]
  3. BACTRIM [Concomitant]
  4. LOVENOX [Concomitant]
  5. MORPHINE [Concomitant]
  6. MORPHINE ER (MS CONTIN) [Concomitant]
  7. SENOKOT [Concomitant]
  8. ZYPREXA [Concomitant]

REACTIONS (5)
  - Confusional state [None]
  - Haematuria [None]
  - Anaemia [None]
  - Hypomagnesaemia [None]
  - Disease progression [None]
